FAERS Safety Report 7759047-X (Version None)
Quarter: 2011Q3

REPORT INFORMATION
  Report Type: 
  Country: None (occurrence: None)
  Receive Date: 20110915
  Receipt Date: 20110708
  Transmission Date: 20111222
  Serious: Yes (Life-Threatening, Hospitalization)
  Sender: FDA-Public Use
  Company Number: US-20110006

PATIENT
  Age: 83 Year
  Sex: Male

DRUGS (9)
  1. NITRO IC (NITROGLYCERINE) (NITROGLYCERINE) [Concomitant]
  2. HEXABRIX [Suspect]
     Indication: CATHETERISATION CARDIAC
     Dates: start: 20110708, end: 20110708
  3. EPINEPHRINE (EPINEPHRINE)(EPINEPHRINE) [Concomitant]
  4. SODIUM BICARBONATE (SODIUM BICARBONATE) (SODIUM BICARBONATE) [Concomitant]
  5. METOPROLOL SUCCINATE [Concomitant]
  6. SALINE (SODIUM CHLORIDE) (SODIUM CHLORIDE) [Concomitant]
  7. LIDOCAINE [Concomitant]
  8. ATROPINE (ATROPINE) (ATROPINE) [Concomitant]
  9. VASOPRESSINE (VASOPRESSINE) (VASOPRESSINE) [Concomitant]

REACTIONS (1)
  - LOSS OF CONSCIOUSNESS [None]
